FAERS Safety Report 4335307-X (Version None)
Quarter: 2004Q2

REPORT INFORMATION
  Report Type: 
  Country: None (occurrence: None)
  Receive Date: 20040408
  Receipt Date: 20040408
  Transmission Date: 20050107
  Serious: Yes (Other)
  Sender: FDA-Public Use
  Company Number: None

PATIENT
  Sex: Male

DRUGS (1)
  1. PROGRAF [Suspect]
     Dosage: 1 MG
     Dates: start: 20030828, end: 20030828

REACTIONS (4)
  - ECHOLALIA [None]
  - SPEECH DISORDER [None]
  - TONGUE DISORDER [None]
  - TREMOR [None]
